FAERS Safety Report 5706036-2 (Version None)
Quarter: 2008Q2

REPORT INFORMATION
  Report Type: 
  Country: None (occurrence: None)
  Receive Date: 20080415
  Receipt Date: 20080404
  Transmission Date: 20081010
  Serious: Yes (Death, Other)
  Sender: FDA-Public Use
  Company Number: US-PFIZER INC-2007059591

PATIENT
  Sex: Male
  Weight: 74.8 kg

DRUGS (2)
  1. XALATAN [Suspect]
     Indication: GLAUCOMA
  2. ANTIEPILEPTICS [Concomitant]

REACTIONS (12)
  - BUNDLE BRANCH BLOCK [None]
  - CARDIAC DISORDER [None]
  - LYMPHOMA [None]
  - MULTI-ORGAN FAILURE [None]
  - OPTIC NERVE NEOPLASM [None]
  - PNEUMONIA [None]
  - RENAL FAILURE [None]
  - RESPIRATORY FAILURE [None]
  - SEPSIS [None]
  - SEPTIC SHOCK [None]
  - STAPHYLOCOCCAL INFECTION [None]
  - WEIGHT DECREASED [None]
